FAERS Safety Report 12435429 (Version 1)
Quarter: 2016Q2

REPORT INFORMATION
  Report Type: Spontaneous
  Country: US (occurrence: US)
  Receive Date: 20160603
  Receipt Date: 20160603
  Transmission Date: 20160815
  Serious: No
  Sender: FDA-Public Use
  Company Number: US-ROCHE-1748957

PATIENT
  Sex: Male

DRUGS (2)
  1. HYDROCORTISONE CREME [Concomitant]
     Indication: PRODUCT USED FOR UNKNOWN INDICATION
     Route: 061
  2. XELODA [Suspect]
     Active Substance: CAPECITABINE
     Indication: NEOPLASM MALIGNANT
     Dosage: TWICE DAILY FOR 7 DAYS AND OFF 7 DAYS AND REPEAT
     Route: 048
     Dates: start: 20160113

REACTIONS (1)
  - Photosensitivity reaction [Unknown]
